FAERS Safety Report 18214525 (Version 3)
Quarter: 2020Q4

REPORT INFORMATION
  Report Type: Spontaneous
  Country: BR (occurrence: BR)
  Receive Date: 20200831
  Receipt Date: 20201009
  Transmission Date: 20210113
  Serious: Yes (Other)
  Sender: FDA-Public Use
  Company Number: BR-JNJFOC-20200834172

PATIENT
  Age: 85 Year
  Sex: Female
  Weight: 67 kg

DRUGS (7)
  1. CRESTOR [Concomitant]
     Active Substance: ROSUVASTATIN CALCIUM
  2. DEXILANT [Concomitant]
     Active Substance: DEXLANSOPRAZOLE
  3. ALOIS [Concomitant]
     Active Substance: MEMANTINE
  4. GLIFAGE [Concomitant]
     Active Substance: METFORMIN HYDROCHLORIDE
  5. SEROQUEL [Concomitant]
     Active Substance: QUETIAPINE FUMARATE
  6. SIMPONI [Suspect]
     Active Substance: GOLIMUMAB
     Indication: RHEUMATOID ARTHRITIS
     Dosage: 50.00 MG / 0.50 ML
     Route: 058
     Dates: start: 2015
  7. VESICARE [Concomitant]
     Active Substance: SOLIFENACIN SUCCINATE

REACTIONS (5)
  - Product dose omission issue [Unknown]
  - Dementia Alzheimer^s type [Unknown]
  - Glaucoma [Unknown]
  - Product storage error [Unknown]
  - Device malfunction [Unknown]

NARRATIVE: CASE EVENT DATE: 20200820
